FAERS Safety Report 23158420 (Version 1)
Quarter: 2023Q4

REPORT INFORMATION
  Report Type: Report from Study
  Country: GB (occurrence: GB)
  Receive Date: 20231108
  Receipt Date: 20231108
  Transmission Date: 20240109
  Serious: Yes (Death, Hospitalization)
  Sender: FDA-Public Use
  Company Number: GB-AMGEN-GBRNI2023193313

PATIENT
  Age: 70 Year
  Sex: Female
  Weight: 115 kg

DRUGS (3)
  1. ADALIMUMAB [Suspect]
     Active Substance: ADALIMUMAB\ISOPROPYL ALCOHOL
     Indication: Rheumatoid arthritis
     Dosage: 40 MILLIGRAM
     Route: 058
     Dates: start: 20190812
  2. HYDROXYCHLOROQUINE [Concomitant]
     Active Substance: HYDROXYCHLOROQUINE
     Dosage: UNK
     Dates: start: 20151013
  3. CHLOROQUINE [Concomitant]
     Active Substance: CHLOROQUINE
     Dosage: UNK
     Dates: start: 20151013

REACTIONS (10)
  - Osteomyelitis [Fatal]
  - Sepsis [Fatal]
  - Encephalitis viral [Fatal]
  - Postoperative wound infection [Fatal]
  - Multiple organ dysfunction syndrome [Fatal]
  - Pleural effusion [Fatal]
  - Pancreatic mass [Fatal]
  - Ulcerative keratitis [Fatal]
  - Anaemia [Fatal]
  - Aortic valve replacement [Fatal]

NARRATIVE: CASE EVENT DATE: 20220412
